FAERS Safety Report 11321091 (Version 1)
Quarter: 2015Q3

REPORT INFORMATION
  Report Type: Spontaneous
  Country: US (occurrence: None)
  Receive Date: 20150728
  Receipt Date: 20150728
  Transmission Date: 20151125
  Serious: Yes (Hospitalization)
  Sender: FDA-Public Use
  Company Number: None

PATIENT
  Age: 52 Year
  Sex: Male
  Weight: 70.9 kg

DRUGS (27)
  1. ACETAMINOPHEN. [Concomitant]
     Active Substance: ACETAMINOPHEN
  2. DENTA 5000 PLUS 1.1% DENTAL CREAM [Concomitant]
  3. FLUCONAZOLE. [Concomitant]
     Active Substance: FLUCONAZOLE
  4. ONDANSETRON [Concomitant]
     Active Substance: ONDANSETRON
  5. FENTANYL. [Concomitant]
     Active Substance: FENTANYL
  6. TAXOTERE [Suspect]
     Active Substance: DOCETAXEL
     Dates: end: 20150610
  7. LORAZEPAM. [Concomitant]
     Active Substance: LORAZEPAM
  8. ASPIRIN. [Concomitant]
     Active Substance: ASPIRIN
  9. LISINOPRIL-HYDROCHLOROTHIAZIDE [Concomitant]
     Active Substance: HYDROCHLOROTHIAZIDE\LISINOPRIL
  10. MIRALAX ORAL PACKERS (POLYEHTYLENE GLYCOL 3350) [Concomitant]
  11. PREDNISONE. [Concomitant]
     Active Substance: PREDNISONE
  12. PROCHORPERAZINE (PROCHLORPERAZINE) [Concomitant]
     Active Substance: PROCHLORPERAZINE
  13. TRANSDERM SCOP [Concomitant]
     Active Substance: SCOPOLAMINE
  14. TUSSIN [Concomitant]
     Active Substance: GUAIFENESIN
  15. FAMOTIDINE. [Concomitant]
     Active Substance: FAMOTIDINE
  16. GLUCAGEN [Concomitant]
     Active Substance: GLUCAGON HYDROCHLORIDE
  17. MAGIC MOUTHWASH [Concomitant]
     Active Substance: DIPHENHYDRAMINE HYDROCHLORIDE\LIDOCAINE HYDROCHLORIDE\NYSTATIN
  18. MORPHINE SULFATE. [Concomitant]
     Active Substance: MORPHINE SULFATE
  19. COLACE [Concomitant]
     Active Substance: DOCUSATE SODIUM
  20. DOCUSATE SODIUM. [Concomitant]
     Active Substance: DOCUSATE SODIUM
  21. NYSTATIN. [Concomitant]
     Active Substance: NYSTATIN
  22. OSMOLITE [Concomitant]
  23. LACTULOSE. [Concomitant]
     Active Substance: LACTULOSE
  24. NEXIUM [Concomitant]
     Active Substance: ESOMEPRAZOLE MAGNESIUM
  25. OXYCODONE [Concomitant]
     Active Substance: OXYCODONE
  26. LIDOCAINE VISCOUS [Concomitant]
     Active Substance: LIDOCAINE HYDROCHLORIDE
  27. SENNA [Concomitant]
     Active Substance: SENNA LEAF\SENNOSIDES\SENNOSIDES A AND B

REACTIONS (2)
  - Nausea [None]
  - Vomiting [None]

NARRATIVE: CASE EVENT DATE: 20150615
